FAERS Safety Report 6635401-4 (Version None)
Quarter: 2010Q1

REPORT INFORMATION
  Report Type: 
  Country: None (occurrence: None)
  Receive Date: 20100315
  Receipt Date: 20090818
  Transmission Date: 20100710
  Serious: No
  Sender: FDA-Public Use
  Company Number: US-ABBOTT-09P-163-0593033-00

PATIENT
  Sex: Female
  Weight: 57.658 kg

DRUGS (5)
  1. DEPAKOTE [Suspect]
     Indication: CONVULSION
     Dosage: UNKNOWN DOSE
     Route: 048
     Dates: start: 19790101, end: 20020101
  2. DEPAKOTE [Suspect]
     Indication: CONVULSION
     Route: 048
     Dates: start: 20020101, end: 20020101
  3. DEPAKOTE [Suspect]
     Route: 048
     Dates: start: 20080101, end: 20080101
  4. ZETIA [Concomitant]
     Indication: BLOOD CHOLESTEROL INCREASED
     Route: 048
  5. DILANTIN [Concomitant]
     Indication: CONVULSION
     Dosage: 2 TAB IN AM, 1 TAB AT NOON, 2 TAB IN EVENING
     Route: 048

REACTIONS (2)
  - CONVULSION [None]
  - MACULAR DEGENERATION [None]
